FAERS Safety Report 4721780-1 (Version None)
Quarter: 2005Q3

REPORT INFORMATION
  Report Type: 
  Country: None (occurrence: None)
  Receive Date: 20050721
  Receipt Date: 20050412
  Transmission Date: 20060218
  Serious: Yes (Other)
  Sender: FDA-Public Use
  Company Number: US-BRISTOL-MYERS SQUIBB COMPANY-12930640

PATIENT
  Age: 76 Year
  Sex: Female
  Weight: 63 kg

DRUGS (10)
  1. COUMADIN [Suspect]
     Indication: CARDIAC OPERATION
     Dosage: 5 MG MONDAY-SATURDAY AND 2.5 MG ON SUNDAY
     Dates: start: 20001215
  2. CALCIUM GLUCONATE [Concomitant]
  3. FOSAMAX [Concomitant]
     Dates: start: 20030101
  4. LASIX [Concomitant]
     Dates: start: 20000101
  5. LANOXIN [Concomitant]
     Dates: start: 20000101
  6. PLAVIX [Concomitant]
     Dates: start: 20010401
  7. SYNTHROID [Concomitant]
  8. VITAMINS [Concomitant]
     Dosage: DOSAGE FORM = TABLET
  9. VITAMIN [Concomitant]
  10. ZOCOR [Concomitant]
     Dates: start: 20000101

REACTIONS (2)
  - INTERNATIONAL NORMALISED RATIO FLUCTUATION [None]
  - TRANSIENT ISCHAEMIC ATTACK [None]
